FAERS Safety Report 11414254 (Version 1)
Quarter: 2015Q3

REPORT INFORMATION
  Report Type: Spontaneous
  Country: US (occurrence: US)
  Receive Date: 20150824
  Receipt Date: 20150824
  Transmission Date: 20151125
  Serious: No
  Sender: FDA-Public Use
  Company Number: US-BAUSCH-BL-2014-006677

PATIENT
  Age: 75 Year
  Sex: Female

DRUGS (2)
  1. CROMOLYN SODIUM NASAL SOLUTION USP [Suspect]
     Active Substance: CROMOLYN SODIUM
     Indication: NASAL CONGESTION
     Dosage: 0.88 FL.OZ, POWDER, 1 SPRAY TID
     Route: 045
     Dates: start: 20140812, end: 20140813
  2. ZYRTEC [Concomitant]
     Active Substance: CETIRIZINE HYDROCHLORIDE
     Indication: PRODUCT USED FOR UNKNOWN INDICATION

REACTIONS (2)
  - Product physical consistency issue [Unknown]
  - Drug ineffective [Recovered/Resolved]

NARRATIVE: CASE EVENT DATE: 20140812
